FAERS Safety Report 6417472-3 (Version None)
Quarter: 2009Q4

REPORT INFORMATION
  Report Type: 
  Country: None (occurrence: None)
  Receive Date: 20091028
  Receipt Date: 20090929
  Transmission Date: 20100525
  Serious: No
  Sender: FDA-Public Use
  Company Number: US-BAYER-200934555NA

PATIENT
  Age: 16 Year
  Sex: Female

DRUGS (1)
  1. ULTRAVIST (PHARMACY BULK) [Suspect]
     Indication: COMPUTERISED TOMOGRAM ABDOMEN
     Dosage: TOTAL DAILY DOSE: 96 ML  UNIT DOSE: 500 ML
     Route: 042
     Dates: start: 20090928, end: 20090928

REACTIONS (2)
  - COUGH [None]
  - THROAT IRRITATION [None]
